FAERS Safety Report 8809881 (Version 1)
Quarter: 2012Q4

REPORT INFORMATION
  Report Type: Report from Study
  Country: CA (occurrence: US)
  Receive Date: 20120926
  Receipt Date: 20120926
  Transmission Date: 20130627
  Serious: Yes (Other)
  Sender: FDA-Public Use
  Company Number: CA-CELGENEUS-163-21880-12083403

PATIENT
  Age: 53 Year
  Sex: Male
  Weight: 69.8 kg

DRUGS (13)
  1. REVLIMID [Suspect]
     Indication: CHRONIC LYMPHOCYTIC LEUKEMIA
     Dosage: 20 Milligram
     Route: 048
     Dates: start: 20080114
  2. TYLEONAL ES [Concomitant]
     Indication: HEADACHE
     Route: 048
     Dates: start: 20090406
  3. ASPIRIN [Concomitant]
     Indication: PROPHYLAXIS
     Dosage: 81 Milligram
     Route: 048
     Dates: start: 20080114
  4. ALLOPURINOL [Concomitant]
     Indication: PROPHYLAXIS
     Dosage: 30 Milligram
     Route: 048
     Dates: start: 20080107, end: 20081117
  5. ALLOPURINOL [Concomitant]
     Dosage: 30 Milligram
     Route: 048
  6. NAPROXEN [Concomitant]
     Indication: PAIN
     Dosage: 250 Milligram
     Route: 048
     Dates: start: 20080121, end: 20080125
  7. NAPROXEN [Concomitant]
     Route: 048
     Dates: start: 20080211
  8. RANITIDINE [Concomitant]
     Indication: TENDERNESS NOS
     Dosage: 300 Milligram
     Route: 048
     Dates: start: 20100304
  9. ALEVE [Concomitant]
     Indication: HEADACHE
     Route: 048
     Dates: start: 20100705
  10. IRON [Concomitant]
     Indication: IRON SUPPLEMENTATION
     Dosage: 28 Milligram
     Route: 048
     Dates: start: 20110102
  11. IMODIUM [Concomitant]
     Indication: DIARRHEA
     Dosage: 2 Milligram
     Route: 048
     Dates: start: 20120308, end: 20120404
  12. IMODIUM [Concomitant]
     Dosage: 2 Milligram
     Route: 048
  13. ANDROGEL [Concomitant]
     Indication: DIARRHEA
     Dosage: 7.5 Gram
     Route: 061
     Dates: start: 20080725

REACTIONS (1)
  - Squamous cell carcinoma of skin [Unknown]
